FAERS Safety Report 11744086 (Version 1)
Quarter: 2015Q4

REPORT INFORMATION
  Report Type: Spontaneous
  Country: US (occurrence: US)
  Receive Date: 20151116
  Receipt Date: 20151116
  Transmission Date: 20160304
  Serious: Yes (Hospitalization, Disabling, Other)
  Sender: FDA-Public Use
  Company Number: US-EMD SERONO-7011721

PATIENT
  Sex: Female

DRUGS (2)
  1. REBIF [Suspect]
     Active Substance: INTERFERON BETA-1A
     Indication: MULTIPLE SCLEROSIS
     Route: 058
     Dates: start: 20021003
  2. REBIF [Suspect]
     Active Substance: INTERFERON BETA-1A
     Route: 058
     Dates: start: 20131113, end: 201506

REACTIONS (14)
  - Muscle strain [Recovering/Resolving]
  - Feeling drunk [Unknown]
  - Hypoaesthesia [Unknown]
  - Coronary artery disease [Recovered/Resolved]
  - Chills [Unknown]
  - Coronary artery occlusion [Unknown]
  - Back injury [Recovering/Resolving]
  - Feeling cold [Unknown]
  - Nasal congestion [Recovering/Resolving]
  - Pulmonary hypertension [Not Recovered/Not Resolved]
  - Primary progressive multiple sclerosis [Unknown]
  - Feeling abnormal [Recovering/Resolving]
  - Balance disorder [Unknown]
  - Headache [Recovering/Resolving]

NARRATIVE: CASE EVENT DATE: 2010
